FAERS Safety Report 7605596-4 (Version None)
Quarter: 2011Q3

REPORT INFORMATION
  Report Type: 
  Country: None (occurrence: None)
  Receive Date: 20110705
  Receipt Date: 20110620
  Transmission Date: 20111222
  Serious: Yes (Other)
  Sender: FDA-Public Use
  Company Number: 2011MA007767

PATIENT
  Age: 38 Year
  Sex: Male

DRUGS (4)
  1. OLANZAPINE [Concomitant]
  2. BUPROPION HYDROCHLORIDE [Suspect]
     Dosage: 1500 MG; NAS
     Route: 045
  3. METFORMIN HCL [Concomitant]
  4. GLYBURIDE [Concomitant]

REACTIONS (8)
  - WRONG TECHNIQUE IN DRUG USAGE PROCESS [None]
  - EUPHORIC MOOD [None]
  - GRAND MAL CONVULSION [None]
  - BLOOD GLUCOSE INCREASED [None]
  - BLOOD PRESSURE SYSTOLIC INCREASED [None]
  - DRUG ABUSER [None]
  - HEART RATE INCREASED [None]
  - TONGUE BITING [None]
